FAERS Safety Report 17115371 (Version 1)
Quarter: 2019Q4

REPORT INFORMATION
  Report Type: Spontaneous
  Country: BR (occurrence: BR)
  Receive Date: 20191205
  Receipt Date: 20191205
  Transmission Date: 20200122
  Serious: Yes (Other)
  Sender: FDA-Public Use
  Company Number: BR-ALLERGAN-1944328US

PATIENT
  Sex: Female

DRUGS (2)
  1. BETAGAN [Suspect]
     Active Substance: LEVOBUNOLOL HYDROCHLORIDE
     Indication: GLAUCOMA
     Dosage: 2 GTT, BID
     Route: 047
     Dates: start: 1999, end: 20191028
  2. CLONAZEPAM. [Concomitant]
     Active Substance: CLONAZEPAM
     Indication: INSOMNIA

REACTIONS (6)
  - Therapy cessation [Unknown]
  - Conjunctivitis [Unknown]
  - Product distribution issue [Unknown]
  - Glaucoma [Unknown]
  - Off label use [Unknown]
  - Cataract [Recovered/Resolved]
